FAERS Safety Report 5630474-X (Version None)
Quarter: 2008Q1

REPORT INFORMATION
  Report Type: 
  Country: None (occurrence: None)
  Receive Date: 20080219
  Receipt Date: 20080206
  Transmission Date: 20080703
  Serious: Yes (Hospitalization)
  Sender: FDA-Public Use
  Company Number: AU-AMGEN-KDL251534

PATIENT
  Sex: Male
  Weight: 75 kg

DRUGS (6)
  1. ARANESP [Suspect]
     Indication: DIALYSIS
     Dates: end: 20080101
  2. OMEPRAZOLE [Concomitant]
  3. CALTRATE [Concomitant]
  4. CALCITRIOL [Concomitant]
  5. MYLANTA [Concomitant]
  6. SENSIPAR [Concomitant]
     Indication: RENAL FAILURE CHRONIC

REACTIONS (4)
  - CENTRAL LINE INFECTION [None]
  - HAEMOGLOBIN INCREASED [None]
  - LYMPHOPENIA [None]
  - NEUTROPHILIA [None]
